FAERS Safety Report 6362636-0 (Version None)
Quarter: 2009Q3

REPORT INFORMATION
  Report Type: 
  Country: None (occurrence: None)
  Receive Date: 20090919
  Receipt Date: 20090608
  Transmission Date: 20100115
  Serious: Yes (Other)
  Sender: FDA-Public Use
  Company Number: US-ABBOTT-09P-163-0578478-00

PATIENT
  Sex: Male
  Weight: 132.57 kg

DRUGS (18)
  1. HUMIRA [Suspect]
     Indication: PSORIASIS
     Route: 058
     Dates: start: 20071101
  2. HUMIRA [Suspect]
     Indication: PSORIASIS
     Route: 058
     Dates: end: 20080601
  3. HUMIRA [Suspect]
     Indication: PSORIATIC ARTHROPATHY
     Route: 058
  4. BYETTA [Concomitant]
     Indication: DRUG USE FOR UNKNOWN INDICATION
  5. PERCOCET [Concomitant]
     Indication: DRUG USE FOR UNKNOWN INDICATION
  6. AMBIEN [Concomitant]
     Indication: DRUG USE FOR UNKNOWN INDICATION
  7. LOVAZA [Concomitant]
     Indication: DRUG USE FOR UNKNOWN INDICATION
  8. ZYRTEC [Concomitant]
     Indication: DRUG USE FOR UNKNOWN INDICATION
  9. ACTOS [Concomitant]
     Indication: DRUG USE FOR UNKNOWN INDICATION
  10. GLUCOPHAGE XR [Concomitant]
     Indication: DRUG USE FOR UNKNOWN INDICATION
  11. PRANDIN [Concomitant]
     Indication: DRUG USE FOR UNKNOWN INDICATION
  12. LISINOPRIL [Concomitant]
     Indication: PROPHYLAXIS
  13. IBUPROFEN [Concomitant]
     Indication: DRUG USE FOR UNKNOWN INDICATION
     Dosage: THREE IN ONE DAY PRN
     Route: 048
  14. GABAPENTIN [Concomitant]
     Indication: DRUG USE FOR UNKNOWN INDICATION
  15. VITAMIN D [Concomitant]
     Indication: DRUG USE FOR UNKNOWN INDICATION
  16. ZINC [Concomitant]
     Indication: DRUG USE FOR UNKNOWN INDICATION
  17. IRON [Concomitant]
     Indication: DRUG USE FOR UNKNOWN INDICATION
  18. ROPINOROL [Concomitant]
     Indication: DRUG USE FOR UNKNOWN INDICATION

REACTIONS (8)
  - ARTHRITIS [None]
  - CELLULITIS [None]
  - INJECTION SITE PAIN [None]
  - PAIN [None]
  - PSORIASIS [None]
  - PSORIATIC ARTHROPATHY [None]
  - SINUSITIS [None]
  - TOOTH ABSCESS [None]
